FAERS Safety Report 6772822 (Version 7)
Quarter: 2014Q1

REPORT INFORMATION
  Report Type: Report from Study
  Country: CA (occurrence: CA)
  Receive Date: 20080926
  Receipt Date: 20140114
  Transmission Date: 20141002
  Serious: Yes (Disabling, Other)
  Sender: FDA-Public Use
  Company Number: PHHY2008CA22231

PATIENT
  Age: 64 Year
  Sex: Male

DRUGS (6)
  1. GLEEVEC [Suspect]
     Indication: ACUTE LYMPHOCYTIC LEUKAEMIA
     Dosage: 400 MG, QD
     Route: 048
     Dates: start: 200505, end: 200810
  2. GLEEVEC [Suspect]
     Indication: CHROMOSOME ANALYSIS ABNORMAL
     Dosage: 400 MG, QD
     Route: 048
  3. LIPITOR [Concomitant]
     Dosage: UNK UKN, UNK
  4. VITAMIN B 12 [Concomitant]
     Dosage: UNK UKN, UNK
  5. VITAMIN B 12 [Concomitant]
     Dosage: UNK
  6. CRESTOR [Concomitant]
     Dosage: UNK UKN, UNK

REACTIONS (16)
  - Parkinson^s disease [Recovering/Resolving]
  - Dyskinesia [Not Recovered/Not Resolved]
  - Tremor [Recovering/Resolving]
  - Mobility decreased [Unknown]
  - Sunburn [Unknown]
  - Blister [Unknown]
  - Hypophagia [Unknown]
  - Decreased appetite [Unknown]
  - Dysgeusia [Unknown]
  - Nausea [Unknown]
  - Pain in extremity [Unknown]
  - Myalgia [Not Recovered/Not Resolved]
  - Muscle spasms [Unknown]
  - Weight increased [Unknown]
  - Hypoaesthesia [Unknown]
  - Paraesthesia [Unknown]
